FAERS Safety Report 15822881 (Version 1)
Quarter: 2019Q1

REPORT INFORMATION
  Report Type: Report from Study
  Country: US (occurrence: US)
  Receive Date: 20190114
  Receipt Date: 20190114
  Transmission Date: 20190417
  Serious: Yes (Other)
  Sender: FDA-Public Use
  Company Number: US-SHIRE-US201900841

PATIENT
  Sex: Female

DRUGS (1)
  1. HUMAN NORMAL IMMUNOGLOBULIN; LIQUID [Suspect]
     Active Substance: HUMAN IMMUNOGLOBULIN G
     Indication: PRIMARY IMMUNODEFICIENCY SYNDROME
     Dosage: UNK
     Route: 042

REACTIONS (9)
  - Wheezing [Unknown]
  - Alopecia [Unknown]
  - Chest pain [Unknown]
  - Sinusitis [Unknown]
  - Influenza [Unknown]
  - Dyspnoea [Unknown]
  - Asthenia [Unknown]
  - Lethargy [Unknown]
  - Urticaria [Unknown]
